FAERS Safety Report 4613296-8 (Version None)
Quarter: 2005Q1

REPORT INFORMATION
  Report Type: 
  Country: None (occurrence: None)
  Receive Date: 20050315
  Receipt Date: 20050301
  Transmission Date: 20050727
  Serious: Yes (Life-Threatening, Hospitalization)
  Sender: FDA-Public Use
  Company Number: DSA_25216_2004

PATIENT
  Age: 56 Year
  Sex: Female
  Weight: 69 kg

DRUGS (7)
  1. RENIVACE [Suspect]
     Dosage: 5 MG Q DAY PO
     Route: 048
     Dates: start: 20041004
  2. DIOVAN [Suspect]
     Indication: HYPERTENSION
     Dosage: 80 MG BID PO
     Route: 048
     Dates: start: 20040906
  3. STARSIS [Concomitant]
  4. BASEN [Concomitant]
  5. SINLESTAL [Concomitant]
  6. ASPIRIN [Concomitant]
  7. LIPOVAS ^BANYU^ [Concomitant]

REACTIONS (4)
  - ANGINA UNSTABLE [None]
  - CORONARY ARTERY ATHEROSCLEROSIS [None]
  - CORONARY ARTERY INSUFFICIENCY [None]
  - ELECTROCARDIOGRAM T WAVE INVERSION [None]
